FAERS Safety Report 12489483 (Version 1)
Quarter: 2016Q2

REPORT INFORMATION
  Report Type: Spontaneous
  Country: US (occurrence: US)
  Receive Date: 20160622
  Receipt Date: 20160622
  Transmission Date: 20160815
  Serious: Yes (Hospitalization, Other)
  Sender: FDA-Public Use
  Company Number: US-JNJFOC-20160614306

PATIENT
  Age: 3 Decade
  Sex: Male

DRUGS (1)
  1. INVEGA TRINZA [Suspect]
     Active Substance: PALIPERIDONE PALMITATE
     Indication: SCHIZOPHRENIA
     Route: 030

REACTIONS (3)
  - Neuroleptic malignant syndrome [Unknown]
  - Suicidal ideation [Unknown]
  - Masked facies [Unknown]

NARRATIVE: CASE EVENT DATE: 201606
